FAERS Safety Report 6093140-5 (Version None)
Quarter: 2009Q1

REPORT INFORMATION
  Report Type: 
  Country: None (occurrence: None)
  Receive Date: 20090226
  Receipt Date: 20090219
  Transmission Date: 20090719
  Serious: Yes (Other)
  Sender: FDA-Public Use
  Company Number: US-PFIZER INC-2009173465

PATIENT
  Sex: Female
  Weight: 77.11 kg

DRUGS (2)
  1. CELEBREX [Suspect]
     Indication: BACK PAIN
     Route: 048
     Dates: end: 20060101
  2. RANITIDINE [Concomitant]

REACTIONS (3)
  - FOLLICULITIS [None]
  - PEPTIC ULCER [None]
  - WEIGHT DECREASED [None]
